FAERS Safety Report 4896034-3 (Version None)
Quarter: 2005Q4

REPORT INFORMATION
  Report Type: 
  Country: None (occurrence: None)
  Receive Date: 20051220
  Receipt Date: 20050216
  Transmission Date: 20060501
  Serious: Yes (Other)
  Sender: FDA-Public Use
  Company Number: 00010586

PATIENT
  Age: 67 Year
  Sex: Female
  Weight: 53.07 kg

DRUGS (9)
  1. ENBREL [Suspect]
     Indication: RHEUMATOID ARTHRITIS
     Dosage: 25 MG, SC
     Route: 058
     Dates: start: 19991020, end: 20000106
  2. METHOTREXATE [Suspect]
     Dosage: 12.5 MG, SC
     Route: 058
     Dates: start: 19850201, end: 20010106
  3. PREDNISONE [Concomitant]
  4. FOLIC ACID [Concomitant]
  5. CELECOXIB [Concomitant]
  6. CALCITONIN-SALMON [Concomitant]
  7. FLUTICASONE PROPIONATE [Concomitant]
  8. VALSARTAN [Concomitant]
  9. ACETAMINOPHEN [Concomitant]

REACTIONS (2)
  - ANAEMIA [None]
  - DIFFUSE LARGE B-CELL LYMPHOMA [None]
